FAERS Safety Report 5430584-6 (Version None)
Quarter: 2007Q3

REPORT INFORMATION
  Report Type: 
  Country: None (occurrence: None)
  Receive Date: 20070828
  Receipt Date: 20070814
  Transmission Date: 20080115
  Serious: Yes (Other)
  Sender: FDA-Public Use
  Company Number: 160134ISR

PATIENT
  Sex: Female

DRUGS (2)
  1. DOXORUBICIN HCL [Suspect]
     Indication: BREAST CANCER
     Dosage: (800 MG, 1 IN 3 WK) TRANSPLACENTAL
     Route: 064
     Dates: start: 20070214, end: 20070529
  2. CYCLOPHOSPHAMIDE [Suspect]
     Indication: BREAST CANCER
     Dosage: (800 MG, 1 IN 1 D) TRANSPLACENTAL
     Route: 064
     Dates: start: 20070214, end: 20070529

REACTIONS (3)
  - DRUG EXPOSURE DURING PREGNANCY [None]
  - NEUTROPENIA NEONATAL [None]
  - WEIGHT DECREASE NEONATAL [None]
